FAERS Safety Report 7215850-6 (Version None)
Quarter: 2011Q1

REPORT INFORMATION
  Report Type: 
  Country: None (occurrence: None)
  Receive Date: 20110105
  Receipt Date: 20110105
  Transmission Date: 20110831
  Serious: Yes (Hospitalization)
  Sender: FDA-Public Use
  Company Number: None

PATIENT
  Age: 86 Year
  Sex: Male
  Weight: 66 kg

DRUGS (2)
  1. WARFARIN SODIUM [Suspect]
     Indication: ATRIAL FIBRILLATION
     Dosage: 2.5 MG PM PO
     Route: 048
     Dates: start: 20101114, end: 20101123
  2. CLOPIDOGREL [Suspect]
     Indication: STENT PLACEMENT
     Dosage: 75 MG EVERY DAY PO
     Route: 048
     Dates: start: 20080422, end: 20101123

REACTIONS (4)
  - DIVERTICULUM [None]
  - HAEMATOCHEZIA [None]
  - COLITIS ISCHAEMIC [None]
  - GASTRIC HAEMORRHAGE [None]
